FAERS Safety Report 6763113-5 (Version None)
Quarter: 2010Q2

REPORT INFORMATION
  Report Type: 
  Country: None (occurrence: None)
  Receive Date: 20100608
  Receipt Date: 20100608
  Transmission Date: 20101027
  Serious: Yes (Other)
  Sender: FDA-Public Use
  Company Number: None

PATIENT
  Age: 81 Year
  Sex: Male
  Weight: 79.8331 kg

DRUGS (2)
  1. PLAIN VINAGAR [Suspect]
     Indication: BLOOD CHOLESTEROL INCREASED
     Dosage: TWO OUNCE DAILY 3 TIMES
     Dates: start: 20100519, end: 20100607
  2. CIALIS [Suspect]
     Indication: ERECTILE DYSFUNCTION
     Dosage: 200MG ONCE A WEEK
     Dates: start: 20100101, end: 20100607

REACTIONS (3)
  - BALANCE DISORDER [None]
  - BLOOD PRESSURE DECREASED [None]
  - DIZZINESS [None]
